FAERS Safety Report 7133882-3 (Version None)
Quarter: 2010Q4

REPORT INFORMATION
  Report Type: 
  Country: None (occurrence: None)
  Receive Date: 20101203
  Receipt Date: 20101118
  Transmission Date: 20110411
  Serious: Yes (Other)
  Sender: FDA-Public Use
  Company Number: DE-RANBAXY-2010RR-39127

PATIENT

DRUGS (21)
  1. CEFUROXIME [Suspect]
     Indication: INFECTION
     Dosage: 500 MG, UNK
     Route: 048
     Dates: start: 20101018, end: 20101020
  2. CEFUROXIME [Suspect]
     Dosage: 250 MG, QID
     Route: 048
     Dates: start: 20101021
  3. CEFUROXIME [Suspect]
     Dosage: 250 MG, BID
     Dates: start: 20101024
  4. VOLTAREN [Concomitant]
     Indication: RHEUMATOID ARTHRITIS
     Dosage: 600 MG, QD
  5. VOLTAREN [Concomitant]
     Dosage: 75 MG, UNK
  6. CORTISONE [Concomitant]
     Indication: RHEUMATOID ARTHRITIS
     Dosage: 5 MG, QD
  7. LISIHEXAL [Concomitant]
     Dosage: 5 MG, BID
  8. RESTEX TABLETS [Concomitant]
     Dosage: UNK MG, QD
  9. RESTEX PROLONGED RELEASE TABLETS [Concomitant]
     Dosage: UNK MG, QD
  10. LITHIUM [Concomitant]
     Dosage: 250 MG, QD
  11. SEROQUEL [Concomitant]
     Dosage: 12.5 MG, BID
  12. ACTOREL [Concomitant]
     Dosage: UNK
  13. METHOTREXATE AND FOLIC ACID [Concomitant]
     Dosage: 7.5 MG, 1/WEEK
  14. TEVANATE 70MG [Concomitant]
     Dosage: UNK MG, UNK
  15. DECORTIN H 5MG [Concomitant]
     Dosage: UNK MG, UNK
  16. EUTHYROX 50UG [Concomitant]
     Dosage: UNK UG, UNK
  17. TRACLEER [Concomitant]
     Dosage: 125 MG, BID
  18. QUILONUM RET. 225MG [Concomitant]
     Dosage: 225 MG, UNK
  19. PANTOPRAZOLE-CT 40MG [Concomitant]
  20. FERROSANOL [Concomitant]
     Dosage: 100 MG, UNK
  21. CALCIUM AND VITAMIN D [Concomitant]

REACTIONS (5)
  - APHASIA [None]
  - CONFUSIONAL STATE [None]
  - DIPLOPIA [None]
  - DIZZINESS [None]
  - GAIT DISTURBANCE [None]
